FAERS Safety Report 16709838 (Version 1)
Quarter: 2019Q3

REPORT INFORMATION
  Report Type: Spontaneous
  Country: US (occurrence: US)
  Receive Date: 20190816
  Receipt Date: 20190816
  Transmission Date: 20191004
  Serious: Yes (Other)
  Sender: FDA-Public Use
  Company Number: US-SA-2018SA106108

PATIENT
  Age: 33 Year
  Sex: Female
  Weight: 50.8 kg

DRUGS (29)
  1. CEREZYME [Suspect]
     Active Substance: IMIGLUCERASE
     Dosage: 3600 (UNITS UNKNOWN)
     Route: 041
     Dates: start: 20181226
  2. OXYCODONE [Concomitant]
     Active Substance: OXYCODONE
     Dosage: 1 DF,UNK
     Route: 065
     Dates: start: 20171003
  3. AUGMENTINE [AMOXICILLIN;CLAVULANIC ACID] [Concomitant]
     Active Substance: AMOXICILLIN\CLAVULANIC ACID
     Dosage: 1 DF
     Route: 048
     Dates: start: 20171020
  4. FAMOTIDINE. [Concomitant]
     Active Substance: FAMOTIDINE
     Dosage: 1 DF,UNK
     Route: 065
     Dates: start: 20171003
  5. OXYBUTYNIN CHLORIDE. [Concomitant]
     Active Substance: OXYBUTYNIN CHLORIDE
     Dosage: 1 DF
     Route: 048
     Dates: start: 20170406
  6. DOXYCYCLINE. [Concomitant]
     Active Substance: DOXYCYCLINE
     Dosage: 1 DF,UNK
     Route: 065
     Dates: start: 20171003
  7. METHADONE [Concomitant]
     Active Substance: METHADONE HYDROCHLORIDE
     Dosage: 1 DF,UNK
     Route: 065
     Dates: start: 20171003
  8. MULTIVITAMINS [VITAMINS NOS] [Concomitant]
     Active Substance: VITAMINS
     Dosage: 1 DF, QD
     Route: 048
     Dates: start: 20160428
  9. EPIPEN [Concomitant]
     Active Substance: EPINEPHRINE
     Dosage: 3 MG,UNK
     Route: 065
     Dates: start: 20160712
  10. AMOXICILLIN;CLAVULANIC ACID [Concomitant]
     Active Substance: AMOXICILLIN\CLAVULANIC ACID
     Dosage: 1 DF,UNK
     Route: 065
     Dates: start: 20171003
  11. EPINEPHRINE. [Concomitant]
     Active Substance: EPINEPHRINE
     Dosage: 0.3 MG, PRN
     Route: 030
     Dates: start: 20181226
  12. SODIUM CHLORIDE. [Concomitant]
     Active Substance: SODIUM CHLORIDE
     Dosage: UNK UNK, UNK
     Route: 065
     Dates: start: 20181226
  13. CEFALEXIN [Concomitant]
     Active Substance: CEPHALEXIN
     Dosage: 1 UNK
     Route: 048
     Dates: start: 20170430
  14. NORMAL SALINE [Concomitant]
     Active Substance: SODIUM CHLORIDE
     Dosage: .9 UNK
     Route: 065
     Dates: start: 20181226
  15. NITROFURANTOIN. [Concomitant]
     Active Substance: NITROFURANTOIN
     Dosage: 100 MG
     Route: 048
     Dates: start: 20181226
  16. ASCORBIC ACID. [Concomitant]
     Active Substance: ASCORBIC ACID
     Dosage: 1 DF,UNK
     Dates: start: 20160428
  17. GABAPENTIN. [Concomitant]
     Active Substance: GABAPENTIN
     Dosage: 1 DF,UNK
     Route: 065
     Dates: start: 20171003
  18. CEREZYME [Suspect]
     Active Substance: IMIGLUCERASE
     Indication: GAUCHER^S DISEASE
     Dosage: 2400 IU
     Route: 041
     Dates: start: 19940728
  19. FAMOTIDINE. [Concomitant]
     Active Substance: FAMOTIDINE
     Dosage: 1 DF; 1-2 TIMES DAILY
     Route: 048
     Dates: start: 20170101
  20. OXYBUTYNIN. [Concomitant]
     Active Substance: OXYBUTYNIN CHLORIDE
     Dosage: 1 DF,UNK
     Route: 065
     Dates: start: 20171003
  21. NORMAL SALINE [Concomitant]
     Active Substance: SODIUM CHLORIDE
     Dosage: .9 %,UNK
     Dates: start: 20160712
  22. OXYCODONE HYDROCHLORIDE. [Concomitant]
     Active Substance: OXYCODONE HYDROCHLORIDE
     Dosage: 1 DF, PRN
     Route: 048
     Dates: start: 20171020
  23. PARACETAMOL [Concomitant]
     Active Substance: ACETAMINOPHEN
     Dosage: 1 DF,UNK
     Dates: start: 20160428
  24. SODIUM CHLORIDE. [Concomitant]
     Active Substance: SODIUM CHLORIDE
     Dosage: 10 ML,UNK
     Route: 065
     Dates: start: 20160712
  25. GABAPENTIN. [Concomitant]
     Active Substance: GABAPENTIN
     Dosage: 1 DF
     Route: 048
     Dates: start: 20170104
  26. CEFALEXIN [Concomitant]
     Active Substance: CEPHALEXIN
     Dosage: 1 DF,UNK
     Route: 065
     Dates: start: 20171003
  27. METHADONE HCL [Concomitant]
     Active Substance: METHADONE HYDROCHLORIDE
     Dosage: 1 DF
     Dates: start: 20170411
  28. VITAMIN C [Concomitant]
     Active Substance: ASCORBIC ACID
     Dosage: 1 DF; QD
     Route: 048
     Dates: start: 20160428
  29. TYLENOL EXTRA STRENGTH [Concomitant]
     Active Substance: ACETAMINOPHEN
     Dosage: 1 DF, PRN
     Route: 048
     Dates: start: 20160428

REACTIONS (1)
  - Osteomyelitis [Not Recovered/Not Resolved]
